FAERS Safety Report 7672413-6 (Version None)
Quarter: 2011Q3

REPORT INFORMATION
  Report Type: 
  Country: None (occurrence: None)
  Receive Date: 20110809
  Receipt Date: 20110729
  Transmission Date: 20111222
  Serious: Yes (Life-Threatening, Hospitalization, Disabling)
  Sender: FDA-Public Use
  Company Number: GB-MERCK-1012GBR00028

PATIENT
  Age: 69 Year
  Sex: Female

DRUGS (16)
  1. ASPIRIN [Concomitant]
     Route: 065
  2. NEBIVOLOL [Concomitant]
     Route: 065
  3. SPIRONOLACTONE [Concomitant]
     Route: 065
  4. CITALOPRAM [Concomitant]
     Route: 065
  5. TRIMETHOPRIM [Concomitant]
     Route: 065
     Dates: start: 20101101
  6. WARFARIN [Concomitant]
     Route: 065
  7. CODEINE PHOSPHATE [Concomitant]
     Route: 065
  8. NEBIVOLOL [Concomitant]
     Route: 065
     Dates: end: 20101021
  9. PERINDOPRIL [Concomitant]
     Route: 065
  10. AMIODARONE HCL [Suspect]
     Route: 048
     Dates: start: 20091001, end: 20101022
  11. ZOCOR [Suspect]
     Route: 048
     Dates: start: 20061201, end: 20101022
  12. FLOXACILLIN [Concomitant]
     Route: 065
     Dates: start: 20101021
  13. BALSALAZIDE DISODIUM [Concomitant]
     Route: 065
  14. BUMETANIDE [Concomitant]
     Route: 065
     Dates: start: 20101028
  15. FUROSEMIDE [Concomitant]
     Route: 065
     Dates: end: 20101022
  16. ACETAMINOPHEN [Concomitant]
     Route: 065

REACTIONS (6)
  - INTERNATIONAL NORMALISED RATIO INCREASED [None]
  - RENAL IMPAIRMENT [None]
  - MOBILITY DECREASED [None]
  - PAIN IN EXTREMITY [None]
  - RHABDOMYOLYSIS [None]
  - ASTHENIA [None]
